FAERS Safety Report 20482791 (Version 1)
Quarter: 2022Q1

REPORT INFORMATION
  Report Type: Spontaneous
  Country: US (occurrence: US)
  Receive Date: 20220217
  Receipt Date: 20220217
  Transmission Date: 20220424
  Serious: No
  Sender: FDA-Public Use
  Company Number: US-ALKEM LABORATORIES LIMITED-US-ALKEM-2021-08092

PATIENT
  Sex: Female

DRUGS (1)
  1. SILVER SULFADIAZINE [Suspect]
     Active Substance: SILVER SULFADIAZINE
     Indication: Thermal burn
     Dosage: UNK
     Route: 061
     Dates: start: 20211206

REACTIONS (5)
  - Pyrexia [Unknown]
  - Urticaria [Unknown]
  - Wound [Unknown]
  - Thermal burn [Unknown]
  - Pruritus [Unknown]

NARRATIVE: CASE EVENT DATE: 20211206
